FAERS Safety Report 7906071-X (Version None)
Quarter: 2011Q4

REPORT INFORMATION
  Report Type: 
  Country: None (occurrence: None)
  Receive Date: 20111110
  Receipt Date: 20111110
  Transmission Date: 20120403
  Serious: Yes (Other)
  Sender: FDA-Public Use
  Company Number: None

PATIENT
  Age: 52 Year
  Sex: Female
  Weight: 59.874 kg

DRUGS (3)
  1. LEVOFLOXACIN [Suspect]
     Indication: SINUSITIS
     Dosage: 1 TABLET
     Route: 048
     Dates: start: 20111104, end: 20111107
  2. LEVOFLOXACIN [Suspect]
     Indication: BRONCHITIS
     Dosage: 1 TABLET
     Route: 048
     Dates: start: 20111104, end: 20111107
  3. ZITHROMAX [Concomitant]

REACTIONS (6)
  - HYPOAESTHESIA ORAL [None]
  - ARTHRALGIA [None]
  - MUSCULOSKELETAL PAIN [None]
  - OESOPHAGEAL SPASM [None]
  - DYSSTASIA [None]
  - CHEST PAIN [None]
